FAERS Safety Report 14913359 (Version 1)
Quarter: 2018Q2

REPORT INFORMATION
  Report Type: Spontaneous
  Country: US (occurrence: US)
  Receive Date: 20180501
  Receipt Date: 20180501
  Transmission Date: 20180711
  Serious: No
  Sender: FDA-Public Use
  Company Number: None

PATIENT
  Age: 53 Year
  Sex: Female

DRUGS (1)
  1. LETAIRIS [Suspect]
     Active Substance: AMBRISENTAN
     Indication: HEART DISEASE CONGENITAL
     Route: 048
     Dates: start: 20180410, end: 20180425

REACTIONS (4)
  - Abdominal distension [None]
  - Weight increased [None]
  - Exercise tolerance decreased [None]
  - Dyspnoea [None]

NARRATIVE: CASE EVENT DATE: 20180425
